FAERS Safety Report 11890650 (Version 1)
Quarter: 2016Q1

REPORT INFORMATION
  Report Type: Spontaneous
  Country: US (occurrence: US)
  Receive Date: 20160105
  Receipt Date: 20160105
  Transmission Date: 20160526
  Serious: No
  Sender: FDA-Public Use
  Company Number: US-BIOGEN-2013BI034281

PATIENT
  Age: 46 Year
  Sex: Female

DRUGS (6)
  1. AVONEX [Suspect]
     Active Substance: INTERFERON BETA-1A
     Indication: MULTIPLE SCLEROSIS
     Route: 030
     Dates: start: 200911, end: 201311
  2. AVONEX [Suspect]
     Active Substance: INTERFERON BETA-1A
     Route: 030
     Dates: start: 20091125
  3. AVONEX [Suspect]
     Active Substance: INTERFERON BETA-1A
     Route: 030
     Dates: start: 201403
  4. AVONEX [Suspect]
     Active Substance: INTERFERON BETA-1A
     Route: 030
     Dates: start: 20131121
  5. AVONEX [Suspect]
     Active Substance: INTERFERON BETA-1A
     Route: 030
     Dates: start: 20131121
  6. AVONEX [Suspect]
     Active Substance: INTERFERON BETA-1A
     Route: 030
     Dates: start: 201311, end: 201403

REACTIONS (22)
  - Fatigue [Unknown]
  - White blood cell count increased [Unknown]
  - Hypoaesthesia [Not Recovered/Not Resolved]
  - Muscular weakness [Not Recovered/Not Resolved]
  - Decreased appetite [Recovered/Resolved]
  - Multiple sclerosis [Not Recovered/Not Resolved]
  - Drug dose omission [Recovered/Resolved]
  - Injection site pain [Unknown]
  - Dysstasia [Not Recovered/Not Resolved]
  - Gait disturbance [Not Recovered/Not Resolved]
  - Visual impairment [Recovered/Resolved]
  - Overdose [Recovered/Resolved]
  - Depression [Unknown]
  - Weight decreased [Recovered/Resolved]
  - Balance disorder [Not Recovered/Not Resolved]
  - Feeling abnormal [Recovered/Resolved]
  - Muscle spasms [Not Recovered/Not Resolved]
  - Pain [Recovered/Resolved]
  - Pyrexia [Recovered/Resolved]
  - Libido decreased [Not Recovered/Not Resolved]
  - Urinary tract infection [Recovered/Resolved]
  - Procedural anxiety [Recovered/Resolved]

NARRATIVE: CASE EVENT DATE: 201205
